FAERS Safety Report 9547520 (Version 1)
Quarter: 2013Q3

REPORT INFORMATION
  Report Type: Spontaneous
  Country: US (occurrence: None)
  Receive Date: 20130923
  Receipt Date: 20130923
  Transmission Date: 20140515
  Serious: No
  Sender: FDA-Public Use
  Company Number: None

PATIENT
  Age: 41 Year
  Sex: Male

DRUGS (1)
  1. AMBIEN CR [Suspect]
     Dosage: 0.625 ONE QHS PO ?8/8-CURRENT
     Route: 048

REACTIONS (2)
  - Drug ineffective [None]
  - Product quality issue [None]
